FAERS Safety Report 12236249 (Version 2)
Quarter: 2016Q2

REPORT INFORMATION
  Report Type: Report from Study
  Country: CA (occurrence: CA)
  Receive Date: 20160404
  Receipt Date: 20160620
  Transmission Date: 20160815
  Serious: Yes (Death, Hospitalization)
  Sender: FDA-Public Use
  Company Number: CA-ABBVIE-16P-028-1595868-00

PATIENT
  Sex: Male
  Weight: 91.71 kg

DRUGS (1)
  1. LUPRON DEPOT [Suspect]
     Active Substance: LEUPROLIDE ACETATE
     Indication: PROSTATE CANCER
     Route: 030
     Dates: start: 20140522

REACTIONS (7)
  - Oedema [Recovering/Resolving]
  - Gout [Unknown]
  - Urinary retention [Unknown]
  - Dyspnoea [Recovering/Resolving]
  - Arthritis bacterial [Recovering/Resolving]
  - Death [Fatal]
  - Arthralgia [Recovering/Resolving]

NARRATIVE: CASE EVENT DATE: 2016
